FAERS Safety Report 11290162 (Version 1)
Quarter: 2015Q3

REPORT INFORMATION
  Report Type: Spontaneous
  Country: FR (occurrence: FR)
  Receive Date: 20150721
  Receipt Date: 20150721
  Transmission Date: 20151125
  Serious: Yes (Other)
  Sender: FDA-Public Use
  Company Number: FR-SA-2015SA106082

PATIENT
  Age: 85 Year
  Sex: Female

DRUGS (6)
  1. FUROSEMIDE. [Suspect]
     Active Substance: FUROSEMIDE
     Indication: ESSENTIAL HYPERTENSION
     Route: 048
  2. PREVISCAN [Suspect]
     Active Substance: FLUINDIONE
     Dosage: FORM: COMPRIME SECABLE; (DIVISIBLE TABLET)
     Route: 048
  3. DIFFU  K [Concomitant]
     Active Substance: POTASSIUM CHLORIDE
     Route: 048
  4. AMIODARONE [Suspect]
     Active Substance: AMIODARONE
     Indication: ATRIAL FIBRILLATION
     Dosage: 1-0-0 EVERY 2 DAYS
     Route: 048
  5. TENORDATE [Suspect]
     Active Substance: ATENOLOL\NIFEDIPINE
     Indication: ESSENTIAL HYPERTENSION
     Route: 048
  6. OFLOCET [Suspect]
     Active Substance: OFLOXACIN
     Route: 048

REACTIONS (1)
  - International normalised ratio increased [Recovered/Resolved]

NARRATIVE: CASE EVENT DATE: 20150331
